FAERS Safety Report 7444766-5 (Version None)
Quarter: 2011Q2

REPORT INFORMATION
  Report Type: 
  Country: None (occurrence: None)
  Receive Date: 20110420
  Receipt Date: 20110412
  Transmission Date: 20111010
  Serious: Yes (Death)
  Sender: FDA-Public Use
  Company Number: KV200900809

PATIENT
  Age: 52 Year
  Sex: Male
  Weight: 103.4 kg

DRUGS (19)
  1. ASPIRIN [Concomitant]
  2. METOPROLOL TARTRATE [Concomitant]
  3. FUROSEMIDE [Concomitant]
  4. LISINOPRIL [Concomitant]
  5. NASACORT [Concomitant]
  6. MUPIROCIN [Concomitant]
  7. GLIPIZIDE [Concomitant]
  8. KLOR-CON [Concomitant]
  9. VERAPAMIL [Concomitant]
  10. CELEXA [Concomitant]
  11. PLAVIX [Concomitant]
  12. COMBIVENT /01033501/ (IPRATROPIUM BROMIDE, SALBUTAMOL) [Concomitant]
  13. SPIRONOOLACTONE (SPIRONOLACTONE) [Concomitant]
  14. FLOMAC /00889901/ (MORNIFLUMATE) [Concomitant]
  15. AVELOX /01453201/ (MOXIFLOXACIN) [Concomitant]
  16. ISOSORBIDE MONONITRATE [Suspect]
     Indication: BLOOD PRESSURE
     Dosage: 30 MG, QD, ORAL
     Route: 048
     Dates: start: 20070919, end: 20080921
  17. ZOLPIDEM [Concomitant]
  18. CADUET (AMLODIPINE BESYLATE (AMLODIPINE BESILATE) [Concomitant]
  19. NITROQUICK (GLYCERYL TRINITRATE) [Concomitant]

REACTIONS (22)
  - MALAISE [None]
  - ECONOMIC PROBLEM [None]
  - OEDEMA PERIPHERAL [None]
  - HALLUCINATION [None]
  - ABDOMINAL DISTENSION [None]
  - IMPAIRED WORK ABILITY [None]
  - DIABETES MELLITUS [None]
  - DYSPNOEA [None]
  - AGITATION [None]
  - INSOMNIA [None]
  - ANAESTHETIC COMPLICATION [None]
  - APNOEA [None]
  - NAUSEA [None]
  - FURUNCLE [None]
  - TREATMENT NONCOMPLIANCE [None]
  - ARRHYTHMIA [None]
  - CORONARY ARTERY DISEASE [None]
  - DEPRESSION [None]
  - MUSCULOSKELETAL PAIN [None]
  - HEAD INJURY [None]
  - ANXIETY [None]
  - ROAD TRAFFIC ACCIDENT [None]
